FAERS Safety Report 24463763 (Version 1)
Quarter: 2024Q4

REPORT INFORMATION
  Report Type: Report from Study
  Country: US (occurrence: US)
  Receive Date: 20241018
  Receipt Date: 20241018
  Transmission Date: 20250114
  Serious: No
  Sender: ROCHE
  Company Number: US-ROCHE-3404465

PATIENT
  Age: 75 Year
  Sex: Female
  Weight: 73.48 kg

DRUGS (15)
  1. XOLAIR [Suspect]
     Active Substance: OMALIZUMAB
     Indication: Idiopathic urticaria
     Route: 058
  2. XOLAIR [Suspect]
     Active Substance: OMALIZUMAB
  3. CETIRIZINE HCL [Concomitant]
     Active Substance: CETIRIZINE HYDROCHLORIDE
  4. FAMOTIDINE [Concomitant]
     Active Substance: FAMOTIDINE
  5. HYDROCHLOROTHIAZIDE [Concomitant]
     Active Substance: HYDROCHLOROTHIAZIDE
  6. SIMVASTATIN [Concomitant]
     Active Substance: SIMVASTATIN
  7. ALPRAZOLAM [Concomitant]
     Active Substance: ALPRAZOLAM
  8. GLIPIZIDE [Concomitant]
     Active Substance: GLIPIZIDE
  9. ASPIRIN [Concomitant]
     Active Substance: ASPIRIN
  10. METFORMIN HYDROCHLORIDE [Concomitant]
     Active Substance: METFORMIN HYDROCHLORIDE
  11. ATENOLOL [Concomitant]
     Active Substance: ATENOLOL
  12. MONTELUKAST [Concomitant]
     Active Substance: MONTELUKAST
  13. EPINEPHRINE [Concomitant]
     Active Substance: EPINEPHRINE
  14. PREDNISONE [Concomitant]
     Active Substance: PREDNISONE
  15. AMITRIPTYLINE [Concomitant]
     Active Substance: AMITRIPTYLINE

REACTIONS (3)
  - Nasal congestion [Unknown]
  - Nocturnal dyspnoea [Unknown]
  - Viral infection [Unknown]
